FAERS Safety Report 19991107 (Version 1)
Quarter: 2021Q4

REPORT INFORMATION
  Report Type: Report from Study
  Country: PA (occurrence: PA)
  Receive Date: 20211025
  Receipt Date: 20211025
  Transmission Date: 20220303
  Serious: Yes (Other)
  Sender: FDA-Public Use
  Company Number: PA-NOVARTISPH-PHHY2019PA091897

PATIENT
  Age: 41 Year
  Sex: Female

DRUGS (1)
  1. GILENYA [Suspect]
     Active Substance: FINGOLIMOD HYDROCHLORIDE
     Indication: Multiple sclerosis
     Dosage: 0.5 MG, QD
     Route: 048
     Dates: start: 20190416

REACTIONS (12)
  - Eye disorder [Not Recovered/Not Resolved]
  - Coordination abnormal [Unknown]
  - Headache [Unknown]
  - Hypoaesthesia [Not Recovered/Not Resolved]
  - Oculogyric crisis [Unknown]
  - Depressed mood [Unknown]
  - Sleep disorder [Unknown]
  - Fear [Unknown]
  - Discomfort [Unknown]
  - Feeling abnormal [Not Recovered/Not Resolved]
  - Anger [Unknown]
  - Lhermitte^s sign [Not Recovered/Not Resolved]

NARRATIVE: CASE EVENT DATE: 20190401
